FAERS Safety Report 9473209 (Version 1)
Quarter: 2013Q3

REPORT INFORMATION
  Report Type: Spontaneous
  Country: US (occurrence: US)
  Receive Date: 20130823
  Receipt Date: 20130823
  Transmission Date: 20140515
  Serious: No
  Sender: FDA-Public Use
  Company Number: US-BRISTOL-MYERS SQUIBB COMPANY-18771717

PATIENT
  Age: 61 Year
  Sex: Female
  Weight: 67.57 kg

DRUGS (9)
  1. SPRYCEL [Suspect]
     Indication: CHRONIC MYELOID LEUKAEMIA
     Route: 048
     Dates: start: 20130401
  2. CALCIUM [Concomitant]
  3. LEVOXYL [Concomitant]
  4. LYCOPENE [Concomitant]
  5. MULTIVITAMIN [Concomitant]
  6. VITAMIN C [Concomitant]
  7. VITAMIN D [Concomitant]
  8. ZINC [Concomitant]
  9. MINERALS [Concomitant]

REACTIONS (1)
  - Periorbital oedema [Not Recovered/Not Resolved]
